FAERS Safety Report 18443003 (Version 1)
Quarter: 2020Q4

REPORT INFORMATION
  Report Type: Report from Study
  Country: BY (occurrence: BY)
  Receive Date: 20201029
  Receipt Date: 20201029
  Transmission Date: 20210114
  Serious: Yes (Life-Threatening, Hospitalization)
  Sender: FDA-Public Use
  Company Number: BY-CELGENEUS-BLR-20171105318

PATIENT
  Sex: Male

DRUGS (3)
  1. OZANIMOD. [Suspect]
     Active Substance: OZANIMOD
     Indication: RELAPSING MULTIPLE SCLEROSIS
     Route: 048
     Dates: start: 20161124, end: 20170821
  2. OZANIMOD. [Suspect]
     Active Substance: OZANIMOD
     Route: 048
     Dates: end: 20171114
  3. OZANIMOD. [Suspect]
     Active Substance: OZANIMOD
     Route: 048
     Dates: start: 20171123, end: 20191004

REACTIONS (2)
  - Immune thrombocytopenia [Recovered/Resolved]
  - Immune thrombocytopenia [Recovered/Resolved]

NARRATIVE: CASE EVENT DATE: 20171114
